FAERS Safety Report 14280019 (Version 1)
Quarter: 2017Q4

REPORT INFORMATION
  Report Type: Spontaneous
  Country: US (occurrence: US)
  Receive Date: 20171212
  Receipt Date: 20171212
  Transmission Date: 20180321
  Serious: Yes (Other)
  Sender: FDA-Public Use
  Company Number: None

PATIENT
  Age: 20 Year
  Sex: Male
  Weight: 40.5 kg

DRUGS (8)
  1. LORAZEPAM. [Concomitant]
     Active Substance: LORAZEPAM
  2. ANTACID [Concomitant]
     Active Substance: ALUMINUM HYDROXIDE\CALCIUM CARBONATE\DIMETHICONE\MAGNESIUM HYDROXIDE
  3. BACLOFEN. [Concomitant]
     Active Substance: BACLOFEN
  4. ALLERGY PILL [Concomitant]
     Active Substance: UNSPECIFIED INGREDIENT
  5. VIMPEP [Concomitant]
  6. ARTANE [Concomitant]
     Active Substance: TRIHEXYPHENIDYL HYDROCHLORIDE
  7. TAMSULOSIN [Concomitant]
     Active Substance: TAMSULOSIN
  8. URSODIOL FORTE [Suspect]
     Active Substance: URSODIOL
     Dosage: ?          QUANTITY:1 TABLET(S);?
     Route: 048

REACTIONS (2)
  - Hypersensitivity [None]
  - Skin hypertrophy [None]

NARRATIVE: CASE EVENT DATE: 20171212
